FAERS Safety Report 9328734 (Version 1)
Quarter: 2013Q2

REPORT INFORMATION
  Report Type: Spontaneous
  Country: US (occurrence: US)
  Receive Date: 20130604
  Receipt Date: 20130604
  Transmission Date: 20140414
  Serious: No
  Sender: FDA-Public Use
  Company Number: US-SANOFI-AVENTIS-2013SA011135

PATIENT
  Age: 71 Year
  Sex: Male

DRUGS (2)
  1. LANTUS [Suspect]
     Indication: TYPE 2 DIABETES MELLITUS
     Dates: start: 201301
  2. BYETTA [Concomitant]

REACTIONS (3)
  - Dyspnoea [Unknown]
  - Insulin resistance [Unknown]
  - Drug hypersensitivity [Unknown]
